FAERS Safety Report 6958174-4 (Version None)
Quarter: 2010Q3

REPORT INFORMATION
  Report Type: 
  Country: None (occurrence: None)
  Receive Date: 20100831
  Receipt Date: 20100816
  Transmission Date: 20110219
  Serious: Yes (Other)
  Sender: FDA-Public Use
  Company Number: US-PFIZER INC-2010107634

PATIENT
  Sex: Female
  Weight: 125 kg

DRUGS (4)
  1. MEDROXYPROGESTERONE ACETATE [Suspect]
     Indication: MENOPAUSAL SYMPTOMS
     Dosage: FROM 30MG TO 100MG 3 TIMES/DAY
     Route: 048
  2. PREMARIN [Suspect]
     Indication: MENOPAUSAL SYMPTOMS
     Dosage: 1.25 MG, 1X/DAY
  3. HYDROCHLOROTHIAZIDE [Concomitant]
     Dosage: UNK
  4. LASIX [Concomitant]
     Dosage: UNK

REACTIONS (8)
  - ANXIETY [None]
  - ARTHRALGIA [None]
  - BLOOD URINE PRESENT [None]
  - CHONDROPATHY [None]
  - DRUG INEFFECTIVE [None]
  - HYPERSENSITIVITY [None]
  - INAPPROPRIATE SCHEDULE OF DRUG ADMINISTRATION [None]
  - VAGINAL HAEMORRHAGE [None]
